FAERS Safety Report 17486061 (Version 3)
Quarter: 2020Q2

REPORT INFORMATION
  Report Type: Report from Study
  Country: None (occurrence: CA)
  Receive Date: 20200303
  Receipt Date: 20200426
  Transmission Date: 20200713
  Serious: Yes (Hospitalization)
  Sender: FDA-Public Use
  Company Number: CA-ABBVIE-20K-028-3299829-00

PATIENT
  Age: 56 Year
  Sex: Male

DRUGS (1)
  1. SKYRIZI [Suspect]
     Active Substance: RISANKIZUMAB-RZAA
     Indication: PSORIASIS
     Route: 058
     Dates: start: 20200115

REACTIONS (11)
  - Asthenia [Unknown]
  - Chills [Unknown]
  - Headache [Unknown]
  - Palpitations [Unknown]
  - Abdominal pain [Unknown]
  - Eczema [Not Recovered/Not Resolved]
  - Heart rate increased [Unknown]
  - Loss of consciousness [Unknown]
  - Pyrexia [Unknown]
  - Back pain [Unknown]
  - Chest pain [Unknown]

NARRATIVE: CASE EVENT DATE: 2020
